FAERS Safety Report 23201343 (Version 7)
Quarter: 2024Q2

REPORT INFORMATION
  Report Type: Report from Study
  Country: US (occurrence: US)
  Receive Date: 20231118
  Receipt Date: 20240409
  Transmission Date: 20240716
  Serious: No
  Sender: FDA-Public Use
  Company Number: US-AstraZeneca-CH-00508278A

PATIENT
  Age: 75 Year
  Sex: Female

DRUGS (1)
  1. STRENSIQ [Suspect]
     Active Substance: ASFOTASE ALFA
     Indication: Hypophosphatasia
     Dosage: 80 MILLIGRAM, SIX TIMES/WEEK
     Route: 058
     Dates: start: 20230703

REACTIONS (10)
  - Fatigue [Not Recovered/Not Resolved]
  - Weight increased [Unknown]
  - Somnolence [Unknown]
  - Laboratory test abnormal [Recovered/Resolved]
  - Depression [Unknown]
  - Subcutaneous drug absorption impaired [Unknown]
  - Injection site nodule [Recovering/Resolving]
  - Injection site pain [Recovered/Resolved]
  - Injection site discolouration [Unknown]
  - Injection site reaction [Unknown]

NARRATIVE: CASE EVENT DATE: 20230701
